FAERS Safety Report 6618745-1 (Version None)
Quarter: 2010Q1

REPORT INFORMATION
  Report Type: 
  Country: None (occurrence: None)
  Receive Date: 20100302
  Receipt Date: 20100208
  Transmission Date: 20100710
  Serious: Yes (Hospitalization)
  Sender: FDA-Public Use
  Company Number: COM10-0247

PATIENT
  Age: 57 Year
  Sex: Female

DRUGS (10)
  1. PREDNISONE [Suspect]
     Indication: ASTHMA
     Dosage: 10 MG
     Dates: start: 20091101
  2. CIPROFLOXACIN HYDROCHLORIDE [Suspect]
     Dosage: SUBCUTANEOUS
     Route: 058
  3. LANTUS [Concomitant]
  4. GLYBURIDE [Concomitant]
  5. ALBUTEROL [Concomitant]
  6. THEOPHYLLINE [Concomitant]
  7. FOSAMAX [Concomitant]
  8. VENTOLIN [Concomitant]
  9. CALCIUM [Concomitant]
  10. MULTI-VITAMINS [Concomitant]

REACTIONS (1)
  - DIABETES MELLITUS INADEQUATE CONTROL [None]
